FAERS Safety Report 12984528 (Version 1)
Quarter: 2016Q4

REPORT INFORMATION
  Report Type: Report from Study
  Country: US (occurrence: US)
  Receive Date: 20161129
  Receipt Date: 20161129
  Transmission Date: 20170207
  Serious: Yes (Other)
  Sender: FDA-Public Use
  Company Number: US-TEVA-715152USA

PATIENT
  Age: 57 Year
  Sex: Female

DRUGS (1)
  1. COPAXONE [Suspect]
     Active Substance: GLATIRAMER ACETATE
     Indication: MULTIPLE SCLEROSIS
     Route: 058

REACTIONS (7)
  - Urinary incontinence [Recovered/Resolved]
  - Hyperhidrosis [Recovered/Resolved]
  - Loss of consciousness [Recovered/Resolved]
  - Peripheral coldness [Recovered/Resolved]
  - Feeling cold [Recovered/Resolved]
  - Anal incontinence [Recovered/Resolved]
  - Dyspnoea [Recovered/Resolved]

NARRATIVE: CASE EVENT DATE: 20160121
